FAERS Safety Report 10035517 (Version 1)
Quarter: 2014Q1

REPORT INFORMATION
  Report Type: Spontaneous
  Country: US (occurrence: US)
  Receive Date: 20140325
  Receipt Date: 20140325
  Transmission Date: 20141002
  Serious: Yes (Other)
  Sender: FDA-Public Use
  Company Number: US-PFIZER INC-2014084461

PATIENT
  Age: 65 Year
  Sex: Female

DRUGS (16)
  1. NORVASC [Suspect]
     Indication: HYPERTENSION
     Dosage: UNK
  2. LISINOPRIL [Suspect]
     Indication: HYPERTENSION
     Dosage: UNK
  3. HYDROCHLOROTHIAZIDE [Suspect]
     Indication: HYPERTENSION
     Dosage: 40 MG, 1X/DAY
     Route: 048
     Dates: start: 20140216, end: 20140227
  4. LEVOMILNACIPRAN [Suspect]
     Dosage: 20 MG, 1X/DAY
     Route: 048
     Dates: start: 20140214, end: 20140215
  5. LEVOMILNACIPRAN [Suspect]
     Dosage: 40 MG, DAILY
     Dates: start: 20140216, end: 20140227
  6. METOPROLOL [Suspect]
     Indication: HYPERTENSION
     Dosage: UNK
  7. ADVAIR [Concomitant]
     Dosage: UNK
  8. SERETIDE [Concomitant]
     Dosage: UNK
  9. ESTRATEST [Concomitant]
     Dosage: UNK
  10. ALBUTEROL [Concomitant]
     Dosage: UNK
  11. PULMICORT [Concomitant]
     Dosage: UNK
  12. GLIPIZIDE [Concomitant]
     Dosage: UNK
  13. METFORMIN [Concomitant]
     Dosage: UNK
  14. NEURONTIN [Concomitant]
     Dosage: UNK
  15. SINGULAIR [Concomitant]
     Dosage: UNK
  16. PROTONIX [Concomitant]
     Dosage: UNK

REACTIONS (1)
  - Hypertension [Recovered/Resolved]
